FAERS Safety Report 13082951 (Version 1)
Quarter: 2017Q1

REPORT INFORMATION
  Report Type: Spontaneous
  Country: US (occurrence: US)
  Receive Date: 20170103
  Receipt Date: 20170103
  Transmission Date: 20170428
  Serious: No
  Sender: FDA-Public Use
  Company Number: US-CIPLA LTD.-2016US20219

PATIENT

DRUGS (4)
  1. CELECOXIB. [Suspect]
     Active Substance: CELECOXIB
     Indication: JOINT SWELLING
     Dosage: 200 MG, FROM PAST 5 YEARS
     Route: 065
  2. ZETIA [Concomitant]
     Active Substance: EZETIMIBE
     Indication: HYPERCHLORAEMIA
     Dosage: 10 MG, UNK
     Route: 065
  3. LOVASTATIN+HTZ [Concomitant]
     Indication: HYPERTENSION
     Dosage: 50MG/12.5MG
     Route: 065
  4. CELECOXIB. [Suspect]
     Active Substance: CELECOXIB
     Indication: ARTHRITIS
     Dosage: 200 MG, QD
     Route: 048

REACTIONS (4)
  - Tongue discomfort [Recovering/Resolving]
  - Product substitution issue [Unknown]
  - Oral discomfort [Recovering/Resolving]
  - Flushing [Recovering/Resolving]
